FAERS Safety Report 7071921-9 (Version None)
Quarter: 2010Q4

REPORT INFORMATION
  Report Type: 
  Country: None (occurrence: None)
  Receive Date: 20101029
  Receipt Date: 20091104
  Transmission Date: 20110411
  Serious: No
  Sender: FDA-Public Use
  Company Number: A0815062A

PATIENT
  Age: 52 Year
  Sex: Female

DRUGS (5)
  1. ADVAIR DISKUS 100/50 [Suspect]
     Dosage: 1PUFF TWICE PER DAY
     Route: 055
     Dates: start: 20031001
  2. FLOVENT [Suspect]
     Indication: PRODUCT USED FOR UNKNOWN INDICATION
     Dosage: 2SPR TWICE PER DAY
     Route: 055
     Dates: start: 20070101
  3. PREDNISONE [Concomitant]
  4. FLOVENT [Concomitant]
  5. AVELOX [Concomitant]

REACTIONS (2)
  - DRUG INEFFECTIVE [None]
  - INFLUENZA [None]
